FAERS Safety Report 13532681 (Version 1)
Quarter: 2017Q2

REPORT INFORMATION
  Report Type: Spontaneous
  Country: US (occurrence: US)
  Receive Date: 20170510
  Receipt Date: 20170510
  Transmission Date: 20170830
  Serious: No
  Sender: FDA-Public Use
  Company Number: US-PERRIGO-16US019492

PATIENT
  Age: 73 Year
  Sex: Male
  Weight: 64.4 kg

DRUGS (3)
  1. FAMOTIDINE. [Suspect]
     Active Substance: FAMOTIDINE
     Indication: HYPERCHLORHYDRIA
  2. FAMOTIDINE. [Suspect]
     Active Substance: FAMOTIDINE
     Indication: ABDOMINAL PAIN UPPER
     Dosage: 10 MG, BID
     Route: 048
     Dates: start: 20160822
  3. FAMOTIDINE. [Suspect]
     Active Substance: FAMOTIDINE
     Indication: DYSPEPSIA

REACTIONS (2)
  - Off label use [Not Recovered/Not Resolved]
  - Constipation [Not Recovered/Not Resolved]

NARRATIVE: CASE EVENT DATE: 20160822
